FAERS Safety Report 14679542 (Version 1)
Quarter: 2018Q1

REPORT INFORMATION
  Report Type: Spontaneous
  Country: US (occurrence: US)
  Receive Date: 20180326
  Receipt Date: 20180326
  Transmission Date: 20180509
  Serious: Yes (Hospitalization)
  Sender: FDA-Public Use
  Company Number: US-JNJFOC-20180316343

PATIENT
  Age: 68 Year
  Sex: Male
  Weight: 88.45 kg

DRUGS (1)
  1. DARZALEX [Suspect]
     Active Substance: DARATUMUMAB
     Indication: PLASMA CELL MYELOMA
     Route: 042
     Dates: start: 2016

REACTIONS (3)
  - Herpes zoster [Unknown]
  - Anaplastic astrocytoma [Recovered/Resolved]
  - Light chain analysis abnormal [Unknown]

NARRATIVE: CASE EVENT DATE: 201704
